FAERS Safety Report 19814096 (Version 1)
Quarter: 2021Q3

REPORT INFORMATION
  Report Type: Spontaneous
  Country: US (occurrence: US)
  Receive Date: 20210910
  Receipt Date: 20210910
  Transmission Date: 20211014
  Serious: No
  Sender: FDA-Public Use
  Company Number: US-ASTRAZENECA-2021A695775

PATIENT
  Age: 804 Month
  Sex: Male
  Weight: 103.4 kg

DRUGS (1)
  1. BYDUREON BCISE [Suspect]
     Active Substance: EXENATIDE
     Indication: TYPE 2 DIABETES MELLITUS
     Route: 058
     Dates: start: 202012

REACTIONS (3)
  - Device defective [Unknown]
  - Incorrect dose administered by device [Unknown]
  - Weight decreased [Unknown]

NARRATIVE: CASE EVENT DATE: 202012
